FAERS Safety Report 4851770-X (Version None)
Quarter: 2005Q4

REPORT INFORMATION
  Report Type: 
  Country: None (occurrence: None)
  Receive Date: 20051209
  Receipt Date: 20051209
  Transmission Date: 20060501
  Serious: Yes (Other)
  Sender: FDA-Public Use
  Company Number: None

PATIENT
  Age: 77 Year
  Sex: Male
  Weight: 63.5036 kg

DRUGS (1)
  1. EFUDEX [Suspect]
     Indication: ACTINIC KERATOSIS
     Dosage: 20 GMS BID TOPICAL
     Route: 061
     Dates: start: 20051020, end: 20051101

REACTIONS (4)
  - INFECTION [None]
  - PAIN [None]
  - SKIN ULCER [None]
  - WOUND SECRETION [None]
